FAERS Safety Report 15172049 (Version 2)
Quarter: 2018Q3

REPORT INFORMATION
  Report Type: Spontaneous
  Country: FR (occurrence: FR)
  Receive Date: 20180720
  Receipt Date: 20180725
  Transmission Date: 20181010
  Serious: Yes (Death)
  Sender: FDA-Public Use
  Company Number: FR-JNJFOC-20180721949

PATIENT
  Age: 64 Year
  Sex: Female
  Weight: 48 kg

DRUGS (2)
  1. ACUPAN [Suspect]
     Active Substance: NEFOPAM HYDROCHLORIDE
     Indication: PAIN
     Route: 042
     Dates: start: 20170818, end: 20170820
  2. TRAMADOL HYDROCHLORIDE. [Suspect]
     Active Substance: TRAMADOL HYDROCHLORIDE
     Indication: BACK PAIN
     Route: 047
     Dates: start: 20170804, end: 20170814

REACTIONS (4)
  - Incorrect route of drug administration [Unknown]
  - Septic shock [Fatal]
  - Large intestine perforation [Fatal]
  - Faecaloma [Fatal]

NARRATIVE: CASE EVENT DATE: 20170804
